FAERS Safety Report 9736175 (Version 6)
Quarter: 2014Q2

REPORT INFORMATION
  Report Type: Report from Study
  Country: US (occurrence: US)
  Receive Date: 20131206
  Receipt Date: 20140509
  Transmission Date: 20141212
  Serious: Yes (Hospitalization)
  Sender: FDA-Public Use
  Company Number: US-ROCHE-1307223

PATIENT
  Age: 64 Year
  Sex: Male
  Weight: 86.1 kg

DRUGS (8)
  1. VEMURAFENIB [Suspect]
     Indication: NEOPLASM MALIGNANT
     Dosage: LAST DOSE PRIOR TO SAE WAS ON 12/NOV/2013.
     Route: 048
     Dates: start: 20130913, end: 20131112
  2. PREDNISONE [Suspect]
     Indication: ACUTE FEBRILE NEUTROPHILIC DERMATOSIS
     Route: 065
     Dates: start: 20131018
  3. AMITRIPTYLINE [Concomitant]
     Dosage: DRUG NAME REPORTED AS ^AMITRYPTYLINE-KETAMINE-LIDOCAINE^ WITH DAILY DOSE OF 60 GM.
     Route: 065
     Dates: start: 20131014
  4. NEURONTIN (UNITED STATES) [Concomitant]
     Route: 065
     Dates: start: 20131011
  5. PRILOSEC [Concomitant]
     Route: 065
     Dates: start: 20131011
  6. OXYCODONE [Concomitant]
     Route: 065
     Dates: start: 20131011
  7. KETAMINE [Concomitant]
     Dosage: DRUG NAME REPORTED AS ^AMITRYPTYLINE-KETAMINE-LIDOCAINE^ WITH DAILY DOSE OF 60 GM.
     Route: 065
     Dates: start: 20131014
  8. LIDOCAINE [Concomitant]
     Dosage: DRUG NAME REPORTED AS ^AMITRYPTYLINE-KETAMINE-LIDOCAINE^ WITH DAILY DOSE OF 60 GM.
     Route: 065
     Dates: start: 20131014

REACTIONS (1)
  - Duodenal perforation [Recovered/Resolved]
